FAERS Safety Report 23804293 (Version 1)
Quarter: 2024Q2

REPORT INFORMATION
  Report Type: Spontaneous
  Country: US (occurrence: None)
  Receive Date: 20240430
  Receipt Date: 20240430
  Transmission Date: 20240715
  Serious: No
  Sender: FDA-Public Use
  Company Number: None

PATIENT
  Age: 80 Year
  Sex: Male

DRUGS (1)
  1. WARFARIN SODIUM [Suspect]
     Active Substance: WARFARIN SODIUM
     Dosage: FREQUENCY : DAILY;?
     Route: 048
     Dates: start: 20120604, end: 20240125

REACTIONS (2)
  - Anaemia [None]
  - International normalised ratio increased [None]

NARRATIVE: CASE EVENT DATE: 20240125
